FAERS Safety Report 8553665-7 (Version None)
Quarter: 2012Q3

REPORT INFORMATION
  Report Type: 
  Country: None (occurrence: None)
  Receive Date: 20120731
  Receipt Date: 20111008
  Transmission Date: 20120928
  Serious: Yes (Other)
  Sender: FDA-Public Use
  Company Number: CO-PFIZER INC-2012182776

PATIENT
  Age: 72 Year
  Sex: Female

DRUGS (2)
  1. LIPITOR [Suspect]
     Indication: DYSLIPIDAEMIA
     Dosage: 20 MG, 1X/DAY
  2. ASPIRIN [Concomitant]
     Dosage: 100 MG, 1X/DAY

REACTIONS (4)
  - RENAL FAILURE CHRONIC [None]
  - HYPERTENSIVE EMERGENCY [None]
  - ARRHYTHMIA [None]
  - PALPITATIONS [None]
